FAERS Safety Report 25940087 (Version 2)
Quarter: 2025Q4

REPORT INFORMATION
  Report Type: Report from Study
  Country: CN (occurrence: CN)
  Receive Date: 20251020
  Receipt Date: 20251114
  Transmission Date: 20260118
  Serious: Yes (Other)
  Sender: ROCHE
  Company Number: CN-ROCHE-10000411196

PATIENT

DRUGS (10)
  1. RITUXIMAB [Suspect]
     Active Substance: RITUXIMAB
     Indication: Diffuse large B-cell lymphoma
     Dosage: ON DAY 0
     Route: 042
  2. POLATUZUMAB VEDOTIN [Suspect]
     Active Substance: POLATUZUMAB VEDOTIN
     Indication: Diffuse large B-cell lymphoma
     Dosage: ON DAY 0
     Route: 065
  3. CYCLOPHOSPHAMIDE [Suspect]
     Active Substance: CYCLOPHOSPHAMIDE
     Indication: Diffuse large B-cell lymphoma
     Dosage: ON DAY 1
     Route: 042
  4. DOXORUBICIN [Suspect]
     Active Substance: DOXORUBICIN
     Indication: Diffuse large B-cell lymphoma
     Dosage: ON DAY 1
     Route: 042
  5. VINCRISTINE [Suspect]
     Active Substance: VINCRISTINE
     Indication: Diffuse large B-cell lymphoma
     Dosage: ON DAY 1
     Route: 042
  6. PREDNISONE [Suspect]
     Active Substance: PREDNISONE
     Indication: Diffuse large B-cell lymphoma
     Dosage: ON DAYS 1-5
     Route: 048
  7. ETOPOSIDE [Suspect]
     Active Substance: ETOPOSIDE
     Indication: Diffuse large B-cell lymphoma
     Dosage: ON DAYS 1-3
     Route: 042
  8. LENALIDOMIDE [Suspect]
     Active Substance: LENALIDOMIDE
     Indication: Diffuse large B-cell lymphoma
     Route: 065
  9. ZANUBRUTINIB [Suspect]
     Active Substance: ZANUBRUTINIB
     Indication: Diffuse large B-cell lymphoma
     Route: 065
  10. TUCIDINOSTAT [Suspect]
     Active Substance: TUCIDINOSTAT
     Indication: Diffuse large B-cell lymphoma
     Route: 065

REACTIONS (16)
  - Neutropenia [Unknown]
  - Febrile neutropenia [Unknown]
  - Anaemia [Unknown]
  - Neuropathy peripheral [Unknown]
  - Upper respiratory tract infection [Unknown]
  - Pneumonia [Unknown]
  - Urinary tract infection [Unknown]
  - Gastrointestinal infection [Unknown]
  - Diarrhoea [Unknown]
  - Gastrointestinal haemorrhage [Unknown]
  - Hepatic function abnormal [Unknown]
  - Interstitial lung disease [Unknown]
  - Hypotension [Unknown]
  - Hepatitis B reactivation [Unknown]
  - Sinus node dysfunction [Unknown]
  - Thrombocytopenia [Unknown]
